FAERS Safety Report 6696489-8 (Version None)
Quarter: 2010Q2

REPORT INFORMATION
  Report Type: 
  Country: None (occurrence: None)
  Receive Date: 20100426
  Receipt Date: 20090608
  Transmission Date: 20101027
  Serious: No
  Sender: FDA-Public Use
  Company Number: A0791559A

PATIENT
  Sex: Female

DRUGS (3)
  1. ZOFRAN [Suspect]
     Indication: DRUG USE FOR UNKNOWN INDICATION
     Dosage: 8MG AS DIRECTED
     Route: 048
  2. RADIATION THERAPY [Suspect]
  3. CHEMOTHERAPY [Suspect]

REACTIONS (1)
  - MALAISE [None]
